FAERS Safety Report 19375748 (Version 1)
Quarter: 2021Q2

REPORT INFORMATION
  Report Type: Spontaneous
  Country: US (occurrence: US)
  Receive Date: 20210605
  Receipt Date: 20210605
  Transmission Date: 20210717
  Serious: Yes (Other)
  Sender: FDA-Public Use
  Company Number: US-AUROBINDO-AUR-APL-2021-022775

PATIENT
  Age: 30 Year
  Sex: Female
  Weight: 67 kg

DRUGS (5)
  1. ROPIVACAINE HYDROCHLORIDE INJECTION USP 0.2% [Suspect]
     Active Substance: ROPIVACAINE HYDROCHLORIDE
     Indication: LABOUR PAIN
     Dosage: UNK
     Route: 040
  2. LIDOCAINE HYDROCHLORIDE INJECTION USP (AMPULES) 1%(10MG/ML) [Suspect]
     Active Substance: LIDOCAINE HYDROCHLORIDE
     Indication: LABOUR PAIN
     Dosage: 5 MILLILITER
     Route: 040
  3. FENTANYL. [Suspect]
     Active Substance: FENTANYL
     Indication: LABOUR PAIN
     Dosage: 20 MICROGRAM
     Route: 037
  4. FENTANYL. [Suspect]
     Active Substance: FENTANYL
     Dosage: 2 MICROGRAM/MILLILITER (BASAL RATE OF 6 ML PER HOUR)
     Route: 065
  5. EPINEPHRINE;LIDOCAINE HYDROCHLORIDE [Suspect]
     Active Substance: EPINEPHRINE\LIDOCAINE HYDROCHLORIDE
     Indication: DRUG PROVOCATION TEST
     Dosage: 3 MILLILITER (LIDOCAINE 1.5% WITH EPINEPHRINE 1:200 000)
     Route: 065

REACTIONS (3)
  - Maternal exposure during pregnancy [Unknown]
  - Horner^s syndrome [Recovered/Resolved]
  - Nerve block [Recovered/Resolved]
